FAERS Safety Report 15020176 (Version 1)
Quarter: 2018Q2

REPORT INFORMATION
  Report Type: Spontaneous
  Country: NL (occurrence: NL)
  Receive Date: 20180618
  Receipt Date: 20180618
  Transmission Date: 20180711
  Serious: Yes (Death)
  Sender: FDA-Public Use
  Company Number: NL-AUROBINDO-AUR-APL-2018-031033

PATIENT
  Age: 24 Year
  Sex: Male
  Weight: 100 kg

DRUGS (2)
  1. METOPROLOL 50MG [Suspect]
     Active Substance: METOPROLOL
     Indication: TACHYCARDIA
     Dosage: 50 MILLIGRAM, BEFORE GOING TO SLEEP
     Route: 065
     Dates: start: 2016
  2. CLOZAPINE AUROBINDO 100 MG TABLET [Suspect]
     Active Substance: CLOZAPINE
     Indication: PSYCHOTIC DISORDER
     Dosage: 550 MILLIGRAM, DAILY, BEFORE THE NIGHT
     Route: 065
     Dates: start: 2016

REACTIONS (1)
  - Death [Fatal]

NARRATIVE: CASE EVENT DATE: 20180525
